FAERS Safety Report 25711181 (Version 2)
Quarter: 2025Q3

REPORT INFORMATION
  Report Type: Spontaneous
  Country: US (occurrence: US)
  Receive Date: 20250821
  Receipt Date: 20250902
  Transmission Date: 20251020
  Serious: Yes (Life-Threatening, Hospitalization)
  Sender: TEVA
  Company Number: US-TEVA-VS-3361669

PATIENT
  Age: 46 Year
  Sex: Female

DRUGS (3)
  1. DEXMEDETOMIDINE [Suspect]
     Active Substance: DEXMEDETOMIDINE
     Indication: Sedative therapy
     Route: 042
  2. NALOXONE [Concomitant]
     Active Substance: NALOXONE
     Indication: Toxicity to various agents
     Route: 065
  3. FENTANYL [Concomitant]
     Active Substance: FENTANYL
     Indication: Sedative therapy
     Route: 065

REACTIONS (5)
  - Sinus bradycardia [Recovering/Resolving]
  - Incorrect dose administered by device [Unknown]
  - Drug administered in wrong device [Unknown]
  - Atrioventricular block second degree [Recovering/Resolving]
  - Device programming error [Unknown]
